FAERS Safety Report 7578471-1 (Version None)
Quarter: 2011Q2

REPORT INFORMATION
  Report Type: 
  Country: None (occurrence: None)
  Receive Date: 20110628
  Receipt Date: 20110623
  Transmission Date: 20111010
  Serious: Yes (Other)
  Sender: FDA-Public Use
  Company Number: GB-MERCK-1106GBR00106

PATIENT
  Age: 68 Year
  Sex: Female
  Weight: 85 kg

DRUGS (2)
  1. ACETAMINOPHEN [Concomitant]
     Route: 065
     Dates: start: 20110509
  2. JANUVIA [Suspect]
     Route: 048
     Dates: start: 20110511, end: 20110608

REACTIONS (1)
  - DIZZINESS [None]
